FAERS Safety Report 10450815 (Version 4)
Quarter: 2014Q4

REPORT INFORMATION
  Report Type: Spontaneous
  Country: JP (occurrence: JP)
  Receive Date: 20140912
  Receipt Date: 20141210
  Transmission Date: 20150528
  Serious: Yes (Life-Threatening, Hospitalization, Other)
  Sender: FDA-Public Use
  Company Number: JP-ASTRAZENECA-2014SE66886

PATIENT
  Age: 5 Year
  Sex: Female
  Weight: 14 kg

DRUGS (13)
  1. SIMULECT [Concomitant]
     Active Substance: BASILIXIMAB
     Indication: RENAL TRANSPLANT
     Route: 041
     Dates: start: 20140902, end: 20140902
  2. FENTANYL. [Concomitant]
     Active Substance: FENTANYL
     Indication: GENERAL ANAESTHESIA
     Route: 041
     Dates: start: 20140902, end: 20140902
  3. MEYLON [Concomitant]
     Active Substance: SODIUM BICARBONATE
     Indication: GENERAL ANAESTHESIA
     Route: 041
     Dates: start: 20140902, end: 20140902
  4. MANNITOL. [Concomitant]
     Active Substance: MANNITOL
     Indication: GENERAL ANAESTHESIA
     Route: 041
     Dates: start: 20140902, end: 20140902
  5. FLUMAZENIL. [Concomitant]
     Active Substance: FLUMAZENIL
     Indication: GENERAL ANAESTHESIA
     Route: 041
     Dates: start: 20140902, end: 20140902
  6. NALOXONE HYDROCHLORIDE. [Concomitant]
     Active Substance: NALOXONE HYDROCHLORIDE
     Indication: GENERAL ANAESTHESIA
     Route: 041
     Dates: start: 20140902, end: 20140902
  7. ANAPEINE [Suspect]
     Active Substance: ROPIVACAINE HYDROCHLORIDE
     Indication: NERVE BLOCK
     Route: 053
     Dates: start: 20140902, end: 20140902
  8. CELLCEPT [Concomitant]
     Active Substance: MYCOPHENOLATE MOFETIL\MYCOPHENOLATE MOFETIL HYDROCHLORIDE
     Indication: RENAL TRANSPLANT
     Route: 048
     Dates: start: 20140831
  9. ESLAX [Concomitant]
     Active Substance: ROCURONIUM BROMIDE
     Indication: GENERAL ANAESTHESIA
     Route: 041
     Dates: start: 20140902, end: 20140902
  10. ULTIVA [Concomitant]
     Active Substance: REMIFENTANIL HYDROCHLORIDE
     Indication: GENERAL ANAESTHESIA
     Dosage: 0.5 GAMMA (INTRAOPERATIVE ADMINISTRATION)
     Route: 041
     Dates: start: 20140902, end: 20140902
  11. PRIDOL [Concomitant]
     Active Substance: METHYLPREDNISOLONE SODIUM SUCCINATE
     Indication: RENAL TRANSPLANT
     Route: 041
     Dates: start: 20140902, end: 20140902
  12. DORMICUM [Concomitant]
     Active Substance: MIDAZOLAM\MIDAZOLAM HYDROCHLORIDE
     Indication: GENERAL ANAESTHESIA
     Route: 041
     Dates: start: 20140902, end: 20140902
  13. PROPOFOL. [Concomitant]
     Active Substance: PROPOFOL
     Indication: GENERAL ANAESTHESIA
     Route: 041
     Dates: start: 20140902, end: 20140902

REACTIONS (3)
  - Blood pressure decreased [Recovered/Resolved]
  - Coma [Recovered/Resolved]
  - Circulatory collapse [Recovered/Resolved]

NARRATIVE: CASE EVENT DATE: 20140902
